FAERS Safety Report 19840929 (Version 1)
Quarter: 2021Q3

REPORT INFORMATION
  Report Type: Spontaneous
  Country: US (occurrence: US)
  Receive Date: 20210916
  Receipt Date: 20210916
  Transmission Date: 20211014
  Serious: Yes (Other)
  Sender: FDA-Public Use
  Company Number: None

PATIENT
  Age: 4 Year
  Sex: Male

DRUGS (2)
  1. DESONIDE 0.05% CREAM [Suspect]
     Active Substance: DESONIDE
     Indication: ECZEMA
     Route: 061
     Dates: start: 20100301, end: 20140601
  2. FLUTICASONE PROPIONATE 0.05% CREAM [Suspect]
     Active Substance: FLUTICASONE PROPIONATE
     Indication: ECZEMA
     Route: 061
     Dates: start: 20100801, end: 20130601

REACTIONS (12)
  - Sleep disorder [None]
  - Therapy non-responder [None]
  - Pruritus [None]
  - Dermatitis [None]
  - Eczema [None]
  - Steroid withdrawal syndrome [None]
  - Hypersensitivity [None]
  - Drug hypersensitivity [None]
  - Urticaria [None]
  - Erythema [None]
  - Drug dependence [None]
  - Rash [None]

NARRATIVE: CASE EVENT DATE: 20140301
